FAERS Safety Report 7231852-8 (Version None)
Quarter: 2011Q1

REPORT INFORMATION
  Report Type: 
  Country: None (occurrence: None)
  Receive Date: 20110118
  Receipt Date: 20110107
  Transmission Date: 20110831
  Serious: Yes (Hospitalization)
  Sender: FDA-Public Use
  Company Number: US-PFIZER INC-2011005850

PATIENT
  Sex: Male

DRUGS (2)
  1. LIPOSOMAL FORMULATION OF DOXORUBICIN [Suspect]
     Indication: METASTATIC SQUAMOUS CELL CARCINOMA
     Dosage: 25 MG/M2, EVERY 4 WEEKS
     Route: 042
     Dates: start: 20100621, end: 20101206
  2. TEMSIROLIMUS [Suspect]
     Indication: METASTATIC SQUAMOUS CELL CARCINOMA
     Dosage: 25 MG, WEEKLY
     Route: 042
     Dates: start: 20100621, end: 20101227

REACTIONS (8)
  - HAEMOGLOBIN DECREASED [None]
  - LYMPHOPENIA [None]
  - PAIN IN JAW [None]
  - HYPOALBUMINAEMIA [None]
  - OSTEONECROSIS OF JAW [None]
  - TRISMUS [None]
  - PROTEINURIA [None]
  - HYPONATRAEMIA [None]
